FAERS Safety Report 26033583 (Version 1)
Quarter: 2025Q4

REPORT INFORMATION
  Report Type: Spontaneous
  Country: US (occurrence: US)
  Receive Date: 20251112
  Receipt Date: 20251112
  Transmission Date: 20260117
  Serious: Yes (Other)
  Sender: HIKMA
  Company Number: US-HIKMA PHARMACEUTICALS USA INC.-US-H14001-24-05181

PATIENT
  Sex: Male

DRUGS (1)
  1. IPRATROPIUM BROMIDE [Suspect]
     Active Substance: IPRATROPIUM BROMIDE
     Indication: Rhinorrhoea
     Dosage: TWO SPRAYS IN EACH NOSTRIL, TWICE A DAY
     Route: 048

REACTIONS (6)
  - Chromaturia [Unknown]
  - Condition aggravated [Unknown]
  - Renal disorder [Unknown]
  - Bladder disorder [Unknown]
  - Constipation [Unknown]
  - Off label use [Unknown]
